FAERS Safety Report 24644120 (Version 1)
Quarter: 2024Q4

REPORT INFORMATION
  Report Type: Spontaneous
  Country: US (occurrence: US)
  Receive Date: 20241120
  Receipt Date: 20241120
  Transmission Date: 20250115
  Serious: Yes (Hospitalization, Other)
  Sender: SANDOZ
  Company Number: US-MLMSERVICE-20200522-2313547-1

PATIENT
  Age: 89 Year
  Sex: Male

DRUGS (7)
  1. DORZOLAMIDE [Suspect]
     Active Substance: DORZOLAMIDE
     Indication: Glaucoma
     Dosage: ONCE IN THE MORNING IN THE LEFT EYE
     Route: 065
  2. INTERFERON ALFA-2B [Suspect]
     Active Substance: INTERFERON ALFA-2B
     Indication: Glaucoma
     Dosage: Q6H
     Route: 061
  3. LATANOPROST [Suspect]
     Active Substance: LATANOPROST
     Indication: Glaucoma
     Dosage: ONCE AT NIGHT IN THE LEFT EYE
     Route: 065
  4. LOTEPREDNOL ETABONATE [Suspect]
     Active Substance: LOTEPREDNOL ETABONATE
     Indication: Ocular surface squamous neoplasia
     Dosage: THREE TIMES PER DAY IN THE LEFT EYE
     Route: 065
  5. PREDNISOLONE ACETATE [Suspect]
     Active Substance: PREDNISOLONE ACETATE
     Indication: Product used for unknown indication
     Dosage: WEEKLY 4,3,2,1 PREDNISOLONE ACETATE 1% TAPER.
     Route: 065
  6. DOXYCYCLINE [Concomitant]
     Active Substance: DOXYCYCLINE
     Indication: Product used for unknown indication
     Dosage: UNK
     Route: 048
  7. VIGAMOX [Concomitant]
     Active Substance: MOXIFLOXACIN HYDROCHLORIDE
     Indication: Product used for unknown indication
     Dosage: UNK, Q6H
     Route: 065

REACTIONS (3)
  - Corneal perforation [Unknown]
  - Ulcerative keratitis [Unknown]
  - Off label use [Unknown]
